FAERS Safety Report 22634472 (Version 1)
Quarter: 2023Q2

REPORT INFORMATION
  Report Type: Report from Study
  Country: US (occurrence: US)
  Receive Date: 20230623
  Receipt Date: 20230623
  Transmission Date: 20230722
  Serious: Yes (Hospitalization, Other)
  Sender: FDA-Public Use
  Company Number: US-GILEAD-2023-0630859

PATIENT
  Age: 63 Year
  Sex: Male

DRUGS (10)
  1. SACITUZUMAB GOVITECAN-HZIY [Suspect]
     Active Substance: SACITUZUMAB GOVITECAN-HZIY
     Indication: Prostate cancer
     Dosage: 10 MG/ML Q21 DAYS
     Route: 042
     Dates: start: 20230518
  2. BERZOSERTIB [Suspect]
     Active Substance: BERZOSERTIB
     Indication: Small cell lung cancer
     Dosage: 433 MILLIGRAM, DAYS 2+9 Q21 DAYS
     Route: 042
     Dates: start: 20230512, end: 20230519
  3. BERZOSERTIB [Suspect]
     Active Substance: BERZOSERTIB
     Indication: Prostate cancer
  4. OXYCODONE [Concomitant]
     Active Substance: OXYCODONE
  5. FUROSEMIDE [Concomitant]
     Active Substance: FUROSEMIDE
  6. POTASSIUM CHLORIDE [Concomitant]
     Active Substance: POTASSIUM CHLORIDE
  7. ONDANSETRON [Concomitant]
     Active Substance: ONDANSETRON
  8. PANTOPRAZOLE [Concomitant]
     Active Substance: PANTOPRAZOLE
  9. DIPHENHYDRAMINE [Concomitant]
     Active Substance: DIPHENHYDRAMINE
  10. ATROPINE [Concomitant]
     Active Substance: ATROPINE

REACTIONS (6)
  - Neutrophil count decreased [Recovered/Resolved with Sequelae]
  - Dehydration [Recovered/Resolved with Sequelae]
  - Diarrhoea [Recovered/Resolved with Sequelae]
  - Febrile neutropenia [Recovered/Resolved with Sequelae]
  - Sepsis [Recovered/Resolved with Sequelae]
  - Enterocolitis [Recovered/Resolved with Sequelae]

NARRATIVE: CASE EVENT DATE: 20230525
